FAERS Safety Report 23223438 (Version 2)
Quarter: 2023Q4

REPORT INFORMATION
  Report Type: Spontaneous
  Country: DK (occurrence: DK)
  Receive Date: 20231123
  Receipt Date: 20231213
  Transmission Date: 20240110
  Serious: Yes (Death)
  Sender: FDA-Public Use
  Company Number: DK-BIOVITRUM-2023-DK-018937

PATIENT
  Sex: Female

DRUGS (5)
  1. EMAPALUMAB [Suspect]
     Active Substance: EMAPALUMAB
     Indication: Inflammation
     Dosage: 3 MG/KG/DOSE WEEKLY
  2. EMAPALUMAB [Suspect]
     Active Substance: EMAPALUMAB
     Dosage: 3 MG/KG/DOSE WEEKLY
     Dates: start: 20231013
  3. EMAPALUMAB [Suspect]
     Active Substance: EMAPALUMAB
     Dosage: 3 MG/KG/DOSE WEEKLY
     Dates: start: 20231020
  4. TREOSULFAN [Suspect]
     Active Substance: TREOSULFAN
     Indication: Product used for unknown indication
  5. FLUDARABINE [Suspect]
     Active Substance: FLUDARABINE PHOSPHATE
     Indication: Product used for unknown indication

REACTIONS (2)
  - Toxicity to various agents [Fatal]
  - Off label use [Unknown]

NARRATIVE: CASE EVENT DATE: 20230101
